FAERS Safety Report 12220672 (Version 3)
Quarter: 2016Q2

REPORT INFORMATION
  Report Type: Spontaneous
  Country: IT (occurrence: IT)
  Receive Date: 20160330
  Receipt Date: 20160406
  Transmission Date: 20160815
  Serious: Yes (Hospitalization)
  Sender: FDA-Public Use
  Company Number: IT-TEVA-646619ACC

PATIENT
  Age: 61 Year
  Sex: Female

DRUGS (16)
  1. LITHIUM CARBONATE. [Suspect]
     Active Substance: LITHIUM CARBONATE
     Indication: BIPOLAR DISORDER
     Dosage: 3 DOSAGE FORMS DAILY; 3 DF DAILY
     Route: 048
  2. DICLOFENAC [Suspect]
     Active Substance: DICLOFENAC
     Indication: DRUG ABUSE
     Route: 065
  3. LAMOTRIGINA ARROW -25 MG COMPRESSE DISPERSIBILI [Concomitant]
     Indication: BIPOLAR DISORDER
  4. SEROQUEL - 200 MG COMPRESSE A RILASCIO PROLUNGATO [Concomitant]
     Indication: BIPOLAR DISORDER
     Dosage: 2 DF
     Route: 048
  5. NOZINAN - 25 MG COMPRESSE RIVESTITE CON FILM [Concomitant]
     Indication: BIPOLAR DISORDER
     Dosage: 2 DOSAGE FORMS DAILY; 2 DF
     Route: 048
  6. RIVOTRIL - 0,5MG COMPRESSE [Concomitant]
     Indication: PRODUCT USED FOR UNKNOWN INDICATION
  7. INDERAL - 40 MG COMPRESSE [Concomitant]
     Indication: VASCULAR ENCEPHALOPATHY
     Dosage: .5 DOSAGE FORMS DAILY; 0.5 DF
     Route: 048
  8. LITHIUM CARBONATE. [Suspect]
     Active Substance: LITHIUM CARBONATE
     Indication: BIPOLAR I DISORDER
  9. NEXIUM 20MG [Concomitant]
     Dosage: 1 DOSAGE FORMS DAILY; 1 DF
     Route: 048
  10. SEROQUEL [Concomitant]
     Active Substance: QUETIAPINE FUMARATE
     Indication: BIPOLAR I DISORDER
     Dosage: 1 DF
     Route: 048
  11. LAMOTRIGINA DOC 100MG [Concomitant]
     Indication: BIPOLAR I DISORDER
     Dosage: 2 DOSAGE FORMS DAILY; 2 DF
     Route: 048
  12. SEROQUEL - 200 MG COMPRESSE A RILASCIO PROLUNGATO [Concomitant]
     Indication: BIPOLAR I DISORDER
  13. NOZINAN - 25 MG COMPRESSE RIVESTITE CON FILM [Concomitant]
     Indication: BIPOLAR I DISORDER
  14. CRESTOR - 10 MG COMPRESSE RIVESTITE CON FILM [Concomitant]
     Indication: VASCULAR ENCEPHALOPATHY
     Dosage: 1 DOSAGE FORMS DAILY; 1 DF
     Route: 048
  15. SEROQUEL [Concomitant]
     Active Substance: QUETIAPINE FUMARATE
     Indication: BIPOLAR I DISORDER
     Dosage: 1 DF
     Route: 048
  16. RIVOTRIL 2.5MG/ML [Concomitant]
     Indication: BIPOLAR I DISORDER
     Dosage: 19 GTT DAILY; 19 GTT
     Route: 048

REACTIONS (5)
  - Balance disorder [Recovering/Resolving]
  - Asthenia [Recovering/Resolving]
  - Drug abuse [Recovering/Resolving]
  - Toxicity to various agents [Recovering/Resolving]
  - Renal failure [Recovering/Resolving]

NARRATIVE: CASE EVENT DATE: 20160118
